FAERS Safety Report 12152672 (Version 1)
Quarter: 2016Q1

REPORT INFORMATION
  Report Type: Other
  Country: US (occurrence: US)
  Receive Date: 20160304
  Receipt Date: 20160304
  Transmission Date: 20160526
  Serious: Yes (Other)
  Sender: FDA-Public Use
  Company Number: US-GUTHY-RENKER LLC-1048725

PATIENT
  Age: 9 Year
  Sex: Female

DRUGS (4)
  1. PROACTIV PLUS PORE TARGETING TREATMENT [Suspect]
     Active Substance: BENZOYL PEROXIDE
     Indication: ACNE
     Route: 061
     Dates: start: 20160202, end: 20160203
  2. PROACTIV PLUS SKIN PURIFYING MASK [Suspect]
     Active Substance: SULFUR
     Route: 061
     Dates: start: 20160202, end: 20160203
  3. PROACTIV PLUS COMPLEXION PERFECTING HYDRATOR [Suspect]
     Active Substance: SALICYLIC ACID
     Route: 061
     Dates: start: 20160202, end: 20160203
  4. PROACTIVPLUS SKIN SMOOTHING EXFOLIATOR [Suspect]
     Active Substance: BENZOYL PEROXIDE
     Route: 061

REACTIONS (3)
  - Swelling face [Not Recovered/Not Resolved]
  - Eye swelling [None]
  - Burning sensation [None]

NARRATIVE: CASE EVENT DATE: 20160205
